FAERS Safety Report 5007568-5 (Version None)
Quarter: 2006Q2

REPORT INFORMATION
  Report Type: 
  Country: None (occurrence: None)
  Receive Date: 20060518
  Receipt Date: 20060511
  Transmission Date: 20061013
  Serious: Yes (Other)
  Sender: FDA-Public Use
  Company Number: 2006039708

PATIENT
  Age: 41 Year
  Sex: Female
  Weight: 63 kg

DRUGS (9)
  1. RELPAX [Suspect]
     Indication: ILL-DEFINED DISORDER
     Dosage: 20 MG, ORAL
     Route: 048
     Dates: start: 20051117, end: 20060201
  2. ACETAMINOPHEN [Concomitant]
  3. BROMPHENIRAMINE [Concomitant]
  4. PYRIDOXINE (PYRIDOXINE) [Concomitant]
  5. BICLOTYMOL (BICLOTYMOL) [Concomitant]
  6. PHOLCODINE TAB [Concomitant]
  7. CYSTINE (CYSTINE) [Concomitant]
  8. ENOXOLONE (ENOXOLONE) [Concomitant]
  9. LYSOZYME (LYSOZYME) [Concomitant]

REACTIONS (1)
  - HEPATITIS [None]
